FAERS Safety Report 18848594 (Version 5)
Quarter: 2021Q1

REPORT INFORMATION
  Report Type: Spontaneous
  Country: JP (occurrence: JP)
  Receive Date: 20210205
  Receipt Date: 20210326
  Transmission Date: 20210419
  Serious: Yes (Other)
  Sender: FDA-Public Use
  Company Number: JP-AMGEN-JPNSP2021003148

PATIENT
  Age: 8 Year
  Sex: Male

DRUGS (4)
  1. BLINCYTO [Suspect]
     Active Substance: BLINATUMOMAB
     Indication: ACUTE LYMPHOCYTIC LEUKAEMIA
     Dosage: 0.38 MILLILITER, QD
     Route: 042
     Dates: start: 20210107, end: 20210113
  2. ICLUSIG [Concomitant]
     Active Substance: PONATINIB
     Dosage: UNK
     Dates: start: 20210217
  3. BLINCYTO [Suspect]
     Active Substance: BLINATUMOMAB
     Dosage: 1.1 MILLILITER, QD
     Route: 042
     Dates: start: 20210114, end: 20210202
  4. BLINCYTO [Suspect]
     Active Substance: BLINATUMOMAB
     Dosage: 0.38 MILLILITER, QD
     Route: 042
     Dates: start: 20210218

REACTIONS (4)
  - Haematochezia [Not Recovered/Not Resolved]
  - Injection site haemorrhage [Unknown]
  - Asteatosis [Recovering/Resolving]
  - Product use issue [Unknown]

NARRATIVE: CASE EVENT DATE: 20210107
